FAERS Safety Report 9895684 (Version 1)
Quarter: 2014Q1

REPORT INFORMATION
  Report Type: Spontaneous
  Country: US (occurrence: US)
  Receive Date: 20140213
  Receipt Date: 20140213
  Transmission Date: 20141002
  Serious: No
  Sender: FDA-Public Use
  Company Number: US-BRISTOL-MYERS SQUIBB COMPANY-18754325

PATIENT
  Age: 53 Year
  Sex: Female

DRUGS (3)
  1. ORENCIA [Suspect]
     Indication: RHEUMATOID ARTHRITIS
     Dosage: INFUSIONS
     Dates: end: 2013
  2. MULTIVITAMIN [Concomitant]
  3. VITAMIN D [Concomitant]

REACTIONS (1)
  - Drug ineffective [Unknown]
